FAERS Safety Report 9157785 (Version 5)
Quarter: 2016Q4

REPORT INFORMATION
  Report Type: Spontaneous
  Country: US (occurrence: US)
  Receive Date: 20130312
  Receipt Date: 20161213
  Transmission Date: 20170207
  Serious: Yes (Other)
  Sender: FDA-Public Use
  Company Number: US-009507513-1303USA004806

PATIENT
  Sex: Male

DRUGS (1)
  1. PROPECIA [Suspect]
     Active Substance: FINASTERIDE
     Indication: ALOPECIA
     Dosage: 1 MG, QD
     Route: 048
     Dates: start: 20050527, end: 20050723

REACTIONS (14)
  - Libido decreased [Unknown]
  - Urine flow decreased [Unknown]
  - Cognitive disorder [Not Recovered/Not Resolved]
  - Mental disorder [Unknown]
  - Sexual dysfunction [Not Recovered/Not Resolved]
  - Pollakiuria [Unknown]
  - Performance status decreased [Not Recovered/Not Resolved]
  - Irritability [Unknown]
  - Urinary tract obstruction [Unknown]
  - Micturition urgency [Unknown]
  - Bladder disorder [Unknown]
  - Anger [Unknown]
  - Cyst [Unknown]
  - Urinary tract infection [Recovered/Resolved]

NARRATIVE: CASE EVENT DATE: 200507
